FAERS Safety Report 8307284-8 (Version None)
Quarter: 2012Q2

REPORT INFORMATION
  Report Type: 
  Country: None (occurrence: None)
  Receive Date: 20120424
  Receipt Date: 20120413
  Transmission Date: 20120825
  Serious: No
  Sender: FDA-Public Use
  Company Number: US-JNJFOC-20120407190

PATIENT
  Sex: Female
  Weight: 83.92 kg

DRUGS (2)
  1. FENTANYL-100 [Suspect]
     Indication: PAIN
     Dosage: NDC#0781-7241-55
     Route: 062
     Dates: start: 20120101
  2. FENTANYL-100 [Suspect]
     Dosage: NDC#0781-7244-55
     Route: 062
     Dates: start: 20120101

REACTIONS (1)
  - WRONG TECHNIQUE IN DRUG USAGE PROCESS [None]
